FAERS Safety Report 8180903-5 (Version None)
Quarter: 2012Q1

REPORT INFORMATION
  Report Type: 
  Country: None (occurrence: None)
  Receive Date: 20120302
  Receipt Date: 20120220
  Transmission Date: 20120608
  Serious: Yes (Hospitalization, Other)
  Sender: FDA-Public Use
  Company Number: US-ELI_LILLY_AND_COMPANY-US201202005846

PATIENT
  Sex: Male
  Weight: 99.773 kg

DRUGS (11)
  1. ALPRAZOLAM [Concomitant]
     Indication: ANXIETY
     Dosage: 1.0 MG, UNK
     Route: 048
  2. VIAGRA [Concomitant]
     Indication: MICTURITION DISORDER
     Dosage: 100 MG, QD
     Dates: start: 20110301
  3. OXYCODONE HCL [Concomitant]
     Indication: PAIN
     Dosage: 1 DF, UNK
     Route: 048
  4. VALSARTAN [Concomitant]
     Indication: BLOOD PRESSURE ABNORMAL
     Dosage: 160 MG, UNK
     Route: 048
  5. CIALIS [Suspect]
     Indication: MICTURITION DISORDER
     Dosage: UNK UNK, QD
     Dates: start: 20110301, end: 20110401
  6. VITAMIN TAB [Concomitant]
     Indication: SUPPLEMENTATION THERAPY
  7. ALPRAZOLAM [Concomitant]
     Dosage: 0.5 MG, EACH EVENING
     Route: 048
  8. HYOSCYAMINE [Concomitant]
     Indication: OESOPHAGEAL DISORDER
  9. ALLOPURINOL [Concomitant]
     Indication: GOUT
     Dosage: 300 MG, UNK
  10. CRANBERRY [Concomitant]
     Indication: SUPPLEMENTATION THERAPY
     Dosage: 450 MG, UNK
  11. VIAGRA [Concomitant]
     Dosage: 100 MG, UNK
     Dates: end: 20110401

REACTIONS (8)
  - OEDEMA PERIPHERAL [None]
  - CYANOPSIA [None]
  - OESOPHAGEAL DISORDER [None]
  - HERPES ZOSTER [None]
  - ARTHRITIS [None]
  - VISION BLURRED [None]
  - HOSPITALISATION [None]
  - RENAL FUNCTION TEST ABNORMAL [None]
